FAERS Safety Report 7881109-7 (Version None)
Quarter: 2011Q4

REPORT INFORMATION
  Report Type: 
  Country: None (occurrence: None)
  Receive Date: 20111101
  Receipt Date: 20110603
  Transmission Date: 20120403
  Serious: No
  Sender: FDA-Public Use
  Company Number: US-AMGEN-USASP2011028860

PATIENT
  Sex: Female

DRUGS (1)
  1. ENBREL [Suspect]
     Indication: ANKYLOSING SPONDYLITIS
     Dosage: 50 MG, QWK
     Dates: start: 20100730, end: 20110518

REACTIONS (5)
  - PAIN IN EXTREMITY [None]
  - PAIN [None]
  - THERAPEUTIC RESPONSE DECREASED [None]
  - BACK PAIN [None]
  - ARTHRALGIA [None]
